FAERS Safety Report 4512174-2 (Version None)
Quarter: 2004Q4

REPORT INFORMATION
  Report Type: 
  Country: None (occurrence: None)
  Receive Date: 20041129
  Receipt Date: 20041026
  Transmission Date: 20050328
  Serious: Yes (Hospitalization)
  Sender: FDA-Public Use
  Company Number: US-ROCHE-386864

PATIENT
  Age: 66 Year
  Sex: Male
  Weight: 73 kg

DRUGS (15)
  1. CAPECITABINE [Suspect]
     Indication: RECTAL CANCER STAGE II
     Route: 048
     Dates: start: 20040916, end: 20041020
  2. OXALIPLATIN [Suspect]
     Indication: RECTAL CANCER STAGE II
     Route: 042
     Dates: start: 20040916, end: 20041007
  3. OXALIPLATIN [Suspect]
     Route: 042
     Dates: start: 20041021
  4. PLAVIX [Concomitant]
     Route: 048
  5. NIACIN [Concomitant]
     Route: 048
  6. ALTACE [Concomitant]
     Route: 048
  7. NITROGLYCERIN [Concomitant]
  8. LASIX [Concomitant]
     Route: 048
  9. PROTONIX [Concomitant]
     Route: 048
  10. ZETIA [Concomitant]
     Route: 048
  11. COREG [Concomitant]
  12. LOMOTIL [Concomitant]
  13. LORAZEPAM [Concomitant]
  14. LORTAB [Concomitant]
  15. COMPAZINE [Concomitant]
     Dosage: PRN

REACTIONS (4)
  - ASTHENIA [None]
  - DIARRHOEA [None]
  - DIZZINESS [None]
  - TRANSIENT ISCHAEMIC ATTACK [None]
